FAERS Safety Report 9604769 (Version 3)
Quarter: 2013Q4

REPORT INFORMATION
  Report Type: Spontaneous
  Country: US (occurrence: US)
  Receive Date: 20131008
  Receipt Date: 20131028
  Transmission Date: 20140711
  Serious: No
  Sender: FDA-Public Use
  Company Number: US-PFIZER INC-2013285444

PATIENT
  Age: 44 Year
  Sex: Male
  Weight: 128 kg

DRUGS (3)
  1. LYRICA [Suspect]
     Indication: DIABETIC NEUROPATHY
     Dosage: 50 MG, 3X/DAY
     Route: 048
     Dates: start: 2013, end: 201309
  2. METFORMIN [Concomitant]
     Dosage: 1000 MG, 2X/DAY
  3. CELEXA [Concomitant]
     Dosage: 20 MG, 1X/DAY

REACTIONS (1)
  - Diabetic neuropathy [Not Recovered/Not Resolved]
